FAERS Safety Report 14216711 (Version 1)
Quarter: 2017Q4

REPORT INFORMATION
  Report Type: Spontaneous
  Country: US (occurrence: US)
  Receive Date: 20171122
  Receipt Date: 20171122
  Transmission Date: 20180321
  Serious: No
  Sender: FDA-Public Use
  Company Number: US-009507513-1711USA000168

PATIENT
  Sex: Female

DRUGS (1)
  1. NUVARING [Suspect]
     Active Substance: ETHINYL ESTRADIOL\ETONOGESTREL
     Dosage: CONCENTRATION 0.015/0.12 MG; 1 RING FOR 3 WEEKS THEN 1 WEEK RING FREE
     Route: 067

REACTIONS (3)
  - No adverse event [Unknown]
  - Device breakage [Unknown]
  - Drug dose omission [Unknown]
